FAERS Safety Report 5273626-3 (Version None)
Quarter: 2007Q1

REPORT INFORMATION
  Report Type: 
  Country: None (occurrence: None)
  Receive Date: 20070321
  Receipt Date: 20070321
  Transmission Date: 20070707
  Serious: No
  Sender: FDA-Public Use
  Company Number: None

PATIENT
  Age: 15 Year
  Sex: Male
  Weight: 54.4316 kg

DRUGS (1)
  1. CLARAVIS [Suspect]
     Indication: ACNE
     Dosage: 30MG 2X DAILY PO
     Route: 048
     Dates: start: 20061120, end: 20070312

REACTIONS (5)
  - ANTISOCIAL BEHAVIOUR [None]
  - APATHY [None]
  - DEPRESSION [None]
  - HEADACHE [None]
  - SUICIDAL IDEATION [None]
